FAERS Safety Report 6543573-5 (Version None)
Quarter: 2010Q1

REPORT INFORMATION
  Report Type: 
  Country: None (occurrence: None)
  Receive Date: 20100120
  Receipt Date: 20100119
  Transmission Date: 20100710
  Serious: Yes (Hospitalization)
  Sender: FDA-Public Use
  Company Number: GB-PURDUE-GBR-2010-0006037

PATIENT
  Age: 39 Year
  Sex: Male
  Weight: 76.6 kg

DRUGS (8)
  1. MORPHINE SULFATE [Suspect]
     Indication: DRUG USE FOR UNKNOWN INDICATION
     Dosage: 160 MG, BID
     Dates: start: 20030812
  2. CIALIS [Suspect]
     Indication: ERECTILE DYSFUNCTION
     Dosage: 20 MG, UNK
     Route: 048
     Dates: start: 20050127
  3. CO-TRIMOXAZOLE [Suspect]
     Indication: HIV INFECTION
     Dosage: 480 MG, DAILY
     Dates: start: 20040303
  4. DIAZEPAM [Suspect]
     Dosage: 10 MG, DAILY
     Route: 048
     Dates: start: 20030812
  5. DICLOFENAC SODIUM [Suspect]
     Dosage: 75 MG, BID
     Route: 048
     Dates: start: 20030812
  6. EFFEXOR [Suspect]
     Dosage: UNK
     Route: 048
     Dates: start: 20030812
  7. PENICILLIN V                       /00001801/ [Suspect]
     Indication: SPLENECTOMY
     Dosage: 250 MG, BID
     Dates: start: 20031111
  8. ZYBAN [Suspect]
     Indication: EX-TOBACCO USER
     Dosage: 150 MG, UNK
     Route: 048
     Dates: start: 20050127

REACTIONS (1)
  - ACUTE MYOCARDIAL INFARCTION [None]
